FAERS Safety Report 25057454 (Version 1)
Quarter: 2025Q1

REPORT INFORMATION
  Report Type: Spontaneous
  Country: US (occurrence: US)
  Receive Date: 20250310
  Receipt Date: 20250310
  Transmission Date: 20250408
  Serious: Yes (Death)
  Sender: AMGEN
  Company Number: US-AMGEN-USASP2025046833

PATIENT
  Sex: Male

DRUGS (13)
  1. OTEZLA [Suspect]
     Active Substance: APREMILAST
     Indication: Psoriasis
     Dosage: 30 MILLIGRAM, BID
     Route: 048
  2. ATORVASTATIN CALCIUM [Concomitant]
     Active Substance: ATORVASTATIN CALCIUM
  3. FUROSEMIDE [Concomitant]
     Active Substance: FUROSEMIDE
  4. VITAMIN D NOS [Concomitant]
     Active Substance: CHOLECALCIFEROL\ERGOCALCIFEROL
  5. CARVEDILOL [Concomitant]
     Active Substance: CARVEDILOL
  6. FERROUS SULFATE [Concomitant]
     Active Substance: FERROUS SULFATE
  7. VELTASSA [Concomitant]
     Active Substance: PATIROMER
  8. SODIUM CITRATE [Concomitant]
     Active Substance: SODIUM CITRATE
  9. ASPIRIN [Concomitant]
     Active Substance: ASPIRIN
  10. PANTOPRAZOLE SODIUM [Concomitant]
     Active Substance: PANTOPRAZOLE SODIUM
  11. VALSARTAN [Concomitant]
     Active Substance: VALSARTAN
  12. FARXIGA [Concomitant]
     Active Substance: DAPAGLIFLOZIN PROPANEDIOL
  13. EZETIMIBE [Concomitant]
     Active Substance: EZETIMIBE

REACTIONS (1)
  - Death [Fatal]
